FAERS Safety Report 9686151 (Version 1)
Quarter: 2013Q4

REPORT INFORMATION
  Report Type: Spontaneous
  Country: JP (occurrence: JP)
  Receive Date: 20131113
  Receipt Date: 20131113
  Transmission Date: 20140711
  Serious: Yes (Disabling, Other)
  Sender: FDA-Public Use
  Company Number: JP-TAKEDA-2013TEU002002

PATIENT
  Age: 74 Year
  Sex: Male

DRUGS (8)
  1. TACHOSIL [Suspect]
     Indication: HAEMORRHAGE PROPHYLAXIS
     Dosage: 1SHEET /1DAY
     Dates: start: 20120808, end: 20120808
  2. LASIX                              /00032601/ [Concomitant]
     Indication: POSTOPERATIVE CARE
     Dosage: 40 MG, QD
     Route: 048
     Dates: start: 20120809
  3. ALDACTONE A [Concomitant]
     Indication: POSTOPERATIVE CARE
     Dosage: 25 MG, QD
     Route: 048
     Dates: start: 20120809
  4. BAYASPIRIN [Concomitant]
     Indication: POSTOPERATIVE CARE
     Dosage: 100 MG, QD
     Route: 048
     Dates: start: 20120809
  5. GAMOFA D [Concomitant]
     Indication: POSTOPERATIVE CARE
     Dosage: 20 MG, BID
     Route: 048
     Dates: start: 20120809
  6. ALOSENN                            /00476901/ [Concomitant]
     Indication: POSTOPERATIVE CARE
     Dosage: 0.5 G, QD
     Route: 048
     Dates: start: 20120809
  7. MUCOSOLVAN [Concomitant]
     Indication: POSTOPERATIVE CARE
     Dosage: 15 MG, TID
     Route: 048
     Dates: start: 20120809
  8. WARFARIN [Concomitant]
     Indication: POSTOPERATIVE CARE
     Dosage: 1.5 MG, QD
     Route: 048
     Dates: start: 20120809

REACTIONS (1)
  - Ventricular arrhythmia [Recovered/Resolved]
